FAERS Safety Report 16852160 (Version 1)
Quarter: 2019Q3

REPORT INFORMATION
  Report Type: Spontaneous
  Country: JP (occurrence: JP)
  Receive Date: 20190925
  Receipt Date: 20190925
  Transmission Date: 20191005
  Serious: Yes (Hospitalization)
  Sender: FDA-Public Use
  Company Number: PHHY2019JP220401

PATIENT
  Age: 79 Year
  Sex: Female

DRUGS (2)
  1. PREDNISOLONE. [Suspect]
     Active Substance: PREDNISOLONE
     Dosage: 0.19 MG/KG, QD (AT 3 MNTHS)
     Route: 065
  2. PREDNISOLONE. [Suspect]
     Active Substance: PREDNISOLONE
     Indication: MICROSCOPIC POLYANGIITIS
     Dosage: 1.78 MG/KG, QD (BASELINE)
     Route: 065

REACTIONS (5)
  - Disease recurrence [Unknown]
  - Infection [Unknown]
  - Product use in unapproved indication [Unknown]
  - Oral candidiasis [Unknown]
  - Microscopic polyangiitis [Unknown]
